FAERS Safety Report 22050453 (Version 2)
Quarter: 2023Q1

REPORT INFORMATION
  Report Type: Spontaneous
  Country: US (occurrence: US)
  Receive Date: 20230301
  Receipt Date: 20230328
  Transmission Date: 20230418
  Serious: No
  Sender: FDA-Public Use
  Company Number: US-PFIZER INC-202300083160

PATIENT
  Age: 35 Year
  Sex: Female
  Weight: 74.83 kg

DRUGS (8)
  1. PAXLOVID [Suspect]
     Active Substance: NIRMATRELVIR\RITONAVIR
     Indication: COVID-19 treatment
     Dosage: UNK, DAILY [1 BLISTER PACK/DAY]
     Route: 048
     Dates: start: 20230214, end: 202302
  2. OMEPRAZOLE [Concomitant]
     Active Substance: OMEPRAZOLE
     Dosage: UNK
     Route: 048
     Dates: start: 202211
  3. MELOXICAM [Concomitant]
     Active Substance: MELOXICAM
     Indication: Renal pain
     Dosage: UNK
     Route: 048
     Dates: start: 202211
  4. ZOFRAN [Concomitant]
     Active Substance: ONDANSETRON HYDROCHLORIDE
     Indication: Nausea
     Dosage: UNK
     Route: 048
     Dates: start: 202204
  5. REGLAN [Concomitant]
     Active Substance: METOCLOPRAMIDE HYDROCHLORIDE
     Indication: Nausea
     Dosage: UNK
     Route: 048
     Dates: start: 202204
  6. VALIUM [Concomitant]
     Active Substance: DIAZEPAM
     Indication: Bladder spasm
     Dosage: UNK
     Route: 048
     Dates: start: 202207
  7. VALIUM [Concomitant]
     Active Substance: DIAZEPAM
     Indication: Renal pain
  8. TYLENOL [Concomitant]
     Active Substance: ACETAMINOPHEN
     Indication: Pyrexia
     Dosage: 1 G
     Dates: start: 202302

REACTIONS (3)
  - COVID-19 [Recovered/Resolved]
  - Disease recurrence [Recovered/Resolved]
  - Off label use [Unknown]

NARRATIVE: CASE EVENT DATE: 20230214
